FAERS Safety Report 9233512 (Version 1)
Quarter: 2013Q2

REPORT INFORMATION
  Report Type: Spontaneous
  Country: US (occurrence: US)
  Receive Date: 20130416
  Receipt Date: 20130416
  Transmission Date: 20140414
  Serious: Yes (Death)
  Sender: FDA-Public Use
  Company Number: US-INCYTE CORPORATION-2013IN000736

PATIENT
  Age: 70 Year
  Sex: Female

DRUGS (4)
  1. JAKAFI [Suspect]
     Indication: MYELOFIBROSIS
     Dosage: 20 MG, BID
     Route: 048
     Dates: start: 20120823
  2. CHOLECALCIFEROL [Concomitant]
  3. AMLODIPINE W/BENAZEPRIL [Concomitant]
  4. LORTAB [Concomitant]

REACTIONS (1)
  - Death [Fatal]
